FAERS Safety Report 8872400 (Version 3)
Quarter: 2013Q1

REPORT INFORMATION
  Report Type: Report from Study
  Country: US (occurrence: US)
  Receive Date: 20121029
  Receipt Date: 20130116
  Transmission Date: 20140127
  Serious: Yes (Hospitalization, Other)
  Sender: FDA-Public Use
  Company Number: US-ACTELION-A-US2012-73238

PATIENT
  Age: 68 Year
  Sex: Female

DRUGS (5)
  1. TRACLEER [Suspect]
     Indication: PULMONARY ARTERIAL HYPERTENSION
     Dosage: UNK
     Route: 048
  2. SILDENAFIL [Concomitant]
  3. TYVASO [Concomitant]
  4. COUMADIN [Concomitant]
  5. ASA [Concomitant]

REACTIONS (5)
  - Renal failure [Unknown]
  - Syncope [Unknown]
  - Insomnia [Unknown]
  - Loss of consciousness [Unknown]
  - Nausea [Unknown]
